FAERS Safety Report 14347602 (Version 1)
Quarter: 2018Q1

REPORT INFORMATION
  Report Type: Spontaneous
  Country: UA (occurrence: UA)
  Receive Date: 20180103
  Receipt Date: 20180103
  Transmission Date: 20180509
  Serious: Yes (Other)
  Sender: FDA-Public Use
  Company Number: UA-TEVA-2017-UA-842027

PATIENT
  Sex: Female

DRUGS (1)
  1. MODELLE PRO [Suspect]
     Active Substance: DROSPIRENONE\ETHINYL ESTRADIOL

REACTIONS (3)
  - Headache [Unknown]
  - Brain oedema [Unknown]
  - Oedema [Unknown]
